FAERS Safety Report 19912705 (Version 2)
Quarter: 2021Q4

REPORT INFORMATION
  Report Type: Spontaneous
  Country: US (occurrence: US)
  Receive Date: 20211004
  Receipt Date: 20211115
  Transmission Date: 20220304
  Serious: Yes (Hospitalization)
  Sender: FDA-Public Use
  Company Number: US-GLAXOSMITHKLINE-US2021205379

PATIENT
  Age: 70 Year
  Sex: Female

DRUGS (2)
  1. BREO ELLIPTA [Suspect]
     Active Substance: FLUTICASONE FUROATE\VILANTEROL TRIFENATATE
     Indication: Lung disorder
     Dosage: 1 PUFF(S), QD FOR 30 DAYS
     Route: 055
     Dates: start: 202101
  2. VENTOLIN HFA [Suspect]
     Active Substance: ALBUTEROL SULFATE
     Indication: Product used for unknown indication
     Dosage: 2 PUFF(S) (EVERY 4-6 HOURS BY INHALATION ROUTE AS NEEDED FOR 16 DAYS)
     Route: 055
     Dates: start: 202101

REACTIONS (3)
  - Fall [Unknown]
  - Rib fracture [Unknown]
  - Off label use [Unknown]

NARRATIVE: CASE EVENT DATE: 20210101
